FAERS Safety Report 8610250 (Version 3)
Quarter: 2013Q1

REPORT INFORMATION
  Report Type: Report from Study
  Country: JP (occurrence: JP)
  Receive Date: 20120612
  Receipt Date: 20130128
  Transmission Date: 20140127
  Serious: Yes (Hospitalization)
  Sender: FDA-Public Use
  Company Number: JP-VERTEX PHARMACEUTICALS INC.-AE-2012-008485

PATIENT
  Age: 63 Year
  Sex: Male

DRUGS (16)
  1. VX-950 (TELAPREVIR) [Suspect]
     Indication: CHRONIC HEPATITIS C
     Dosage: 2250 MG, QD
     Route: 048
     Dates: start: 20120410, end: 20120412
  2. VX-950 (TELAPREVIR) [Suspect]
     Dosage: 1500 MG, QD
     Route: 048
     Dates: start: 20120413, end: 20120525
  3. REBETOL [Suspect]
     Indication: CHRONIC HEPATITIS C
     Dosage: 600 MG, QD
     Route: 048
     Dates: start: 20120410, end: 20120430
  4. REBETOL [Suspect]
     Dosage: 400 MG, QD
     Route: 048
     Dates: start: 20120501, end: 20120521
  5. REBETOL [Suspect]
     Dosage: 200 MG, QD
     Route: 048
     Dates: start: 20120522, end: 20120525
  6. REBETOL [Suspect]
     Dosage: 200 MG, QD
     Route: 048
     Dates: start: 20120619
  7. PEGINTRON [Concomitant]
     Dosage: 1.5 ?G/KG, QW
     Route: 058
     Dates: start: 20120410, end: 20120525
  8. PEGINTRON [Concomitant]
     Dosage: 1.5 ?G/KG, QW
     Route: 058
     Dates: start: 20120619
  9. JANUVIA [Concomitant]
     Dosage: 50 MG, QD
     Route: 048
  10. NORVASC [Concomitant]
     Dosage: 25 MG, QD
     Route: 048
  11. METGLUCO [Concomitant]
     Dosage: 500 MG, QD
     Route: 048
  12. TAKEPRON [Concomitant]
     Dosage: 15 MG, QD
     Route: 048
  13. PROMAC [Concomitant]
     Dosage: 150 MG, QD
     Route: 048
     Dates: start: 20120413
  14. LOXONIN [Concomitant]
     Dosage: 60 MG/ QD, PRN
     Route: 048
     Dates: start: 20120523
  15. HUSTAZOL [Concomitant]
     Dosage: 30 MG, QD
     Route: 048
     Dates: start: 20120529
  16. HUSTAZOL [Concomitant]
     Dosage: UNK

REACTIONS (2)
  - Presyncope [Recovered/Resolved]
  - Anaemia [Recovered/Resolved]
